FAERS Safety Report 5633755-9 (Version None)
Quarter: 2008Q1

REPORT INFORMATION
  Report Type: 
  Country: None (occurrence: None)
  Receive Date: 20080219
  Receipt Date: 20080206
  Transmission Date: 20080703
  Serious: Yes (Hospitalization)
  Sender: FDA-Public Use
  Company Number: CIP08000224

PATIENT
  Age: 82 Year
  Sex: Female

DRUGS (2)
  1. RISEDRONATE SODIUM [Suspect]
     Indication: OSTEOPOROSIS
     Dosage: 2.5 MG DAILY, ORAL
     Route: 048
     Dates: start: 20070111, end: 20070219
  2. MOHRUS YUTOKU (KETOPROFEN) [Concomitant]

REACTIONS (5)
  - ABDOMINAL PAIN UPPER [None]
  - CARDIAC FAILURE [None]
  - DIARRHOEA [None]
  - PLEURAL EFFUSION [None]
  - WEIGHT DECREASED [None]
